FAERS Safety Report 10154629 (Version 1)
Quarter: 2014Q2

REPORT INFORMATION
  Report Type: Spontaneous
  Country: US (occurrence: US)
  Receive Date: 20140506
  Receipt Date: 20140506
  Transmission Date: 20141212
  Serious: Yes (Hospitalization)
  Sender: FDA-Public Use
  Company Number: US-ROCHE-1395688

PATIENT
  Sex: Female

DRUGS (5)
  1. XOLAIR [Suspect]
     Indication: ASTHMA
     Route: 065
  2. SINGULAIR [Concomitant]
     Route: 065
  3. ALBUTEROL [Concomitant]
     Route: 055
  4. THEOPHYLLINE [Concomitant]
     Route: 065
  5. ALBUTEROL SULFATE [Concomitant]
     Route: 055

REACTIONS (1)
  - Bronchitis [Unknown]
